FAERS Safety Report 6230892-5 (Version None)
Quarter: 2009Q2

REPORT INFORMATION
  Report Type: 
  Country: None (occurrence: None)
  Receive Date: 20090616
  Receipt Date: 20090604
  Transmission Date: 20091009
  Serious: Yes (Hospitalization, Other)
  Sender: FDA-Public Use
  Company Number: PHHY2009JP20763

PATIENT
  Age: 54 Year
  Sex: Male

DRUGS (5)
  1. CYCLOSPORINE [Suspect]
     Indication: STEM CELL TRANSPLANT
  2. CYCLOSPORINE [Suspect]
     Indication: PROPHYLAXIS AGAINST GRAFT VERSUS HOST DISEASE
  3. PREDNISOLONE [Concomitant]
     Dosage: UNK
     Dates: start: 20060101
  4. PREDNISOLONE [Concomitant]
     Dosage: 55 MG, UNK
     Dates: start: 20071101
  5. SOL MEDROL [Concomitant]
     Indication: GRAFT VERSUS HOST DISEASE
     Dosage: 60 MG, UNK
     Route: 041
     Dates: start: 20071001

REACTIONS (14)
  - CATARACT [None]
  - CATARACT OPERATION [None]
  - CYTOMEGALOVIRUS CHORIORETINITIS [None]
  - GRAFT VERSUS HOST DISEASE [None]
  - HEPATIC FUNCTION ABNORMAL [None]
  - INTRAOCULAR LENS IMPLANT [None]
  - MYODESOPSIA [None]
  - PLEURAL EFFUSION [None]
  - PYREXIA [None]
  - RASH [None]
  - RETINAL DETACHMENT [None]
  - RETINAL HAEMORRHAGE [None]
  - VISION BLURRED [None]
  - VITRECTOMY [None]
